FAERS Safety Report 18601352 (Version 3)
Quarter: 2021Q1

REPORT INFORMATION
  Report Type: Spontaneous
  Country: CZ (occurrence: CZ)
  Receive Date: 20201210
  Receipt Date: 20210128
  Transmission Date: 20210419
  Serious: Yes (Other)
  Sender: FDA-Public Use
  Company Number: CZ-MYLANLABS-2020M1101300

PATIENT
  Age: 55 Year
  Sex: Female

DRUGS (19)
  1. PACLITAXEL. [Suspect]
     Active Substance: PACLITAXEL
     Indication: METASTASES TO OVARY
     Dosage: UNK UNK, CYCLE, 3 UNK, CYCLIC
     Route: 065
  2. PACLITAXEL. [Suspect]
     Active Substance: PACLITAXEL
     Dosage: UNK
     Dates: end: 201312
  3. CARBOPLATIN. [Suspect]
     Active Substance: CARBOPLATIN
     Indication: METASTASES TO OVARY
     Dosage: 3 UNK, CYCLIC
     Route: 065
  4. CARBOPLATIN. [Suspect]
     Active Substance: CARBOPLATIN
     Dosage: 6 UNK, CYCLIC
     Route: 065
     Dates: start: 201307, end: 201312
  5. PACLITAXEL. [Suspect]
     Active Substance: PACLITAXEL
     Dosage: UNK
     Route: 065
  6. CARBOPLATIN. [Suspect]
     Active Substance: CARBOPLATIN
     Indication: OVARIAN CANCER STAGE III
     Dosage: 4 UNK, CYCLIC
     Route: 065
     Dates: start: 200407
  7. CARBOPLATIN. [Suspect]
     Active Substance: CARBOPLATIN
     Dosage: UNK
     Dates: end: 201312
  8. PACLITAXEL. [Suspect]
     Active Substance: PACLITAXEL
     Dosage: 6 CYCLES
     Dates: start: 201604, end: 201607
  9. CARBOPLATIN. [Suspect]
     Active Substance: CARBOPLATIN
     Indication: OVARIAN CANCER
     Dosage: 6 UNK, CYCLIC
     Route: 065
  10. PACLITAXEL. [Suspect]
     Active Substance: PACLITAXEL
     Dosage: UNK, QW (4 CYCLES)
     Route: 065
     Dates: start: 201009
  11. CARBOPLATIN. [Suspect]
     Active Substance: CARBOPLATIN
     Dosage: 6 UNK, CYCLIC
     Route: 065
     Dates: start: 200812, end: 200904
  12. PACLITAXEL. [Suspect]
     Active Substance: PACLITAXEL
     Indication: OVARIAN CANCER
     Dosage: UNK UNK, 6 CYCLE
     Route: 065
  13. PACLITAXEL. [Suspect]
     Active Substance: PACLITAXEL
     Dosage: UNK UNK, CYCLE, 6 UNK, CYCLIC
     Route: 065
     Dates: start: 200812, end: 200904
  14. CARBOPLATIN. [Suspect]
     Active Substance: CARBOPLATIN
     Dosage: UNK, QW (4 CYCLES)
     Route: 065
     Dates: start: 201009
  15. CARBOPLATIN. [Suspect]
     Active Substance: CARBOPLATIN
     Dosage: 6 CYCLES
     Route: 065
     Dates: start: 201604, end: 201607
  16. TOPOTECAN [Suspect]
     Active Substance: TOPOTECAN HYDROCHLORIDE
     Indication: OVARIAN CANCER
     Dosage: UNK, CYCLE, 6 CYCLES OF TOPOTECAN HYDROCHLORIDE
     Route: 065
     Dates: start: 201001, end: 201005
  17. PACLITAXEL. [Suspect]
     Active Substance: PACLITAXEL
     Indication: OVARIAN CANCER STAGE III
     Dosage: 4 UNK, CYCLIC
     Route: 065
     Dates: start: 200407
  18. PACLITAXEL. [Suspect]
     Active Substance: PACLITAXEL
     Dosage: 6 UNK, CYCLIC
     Route: 065
     Dates: end: 201607
  19. DOXORUBICIN [Suspect]
     Active Substance: DOXORUBICIN
     Indication: OVARIAN CANCER
     Dosage: UNK UNK, CYCLE, 6 CYCLES
     Route: 065
     Dates: start: 201409, end: 201502

REACTIONS (7)
  - Ovarian cancer recurrent [Unknown]
  - Myelodysplastic syndrome [Unknown]
  - Therapy partial responder [Unknown]
  - Dysplasia [Unknown]
  - Malignant neoplasm progression [Unknown]
  - Anaemia [Unknown]
  - Thrombocytopenia [Unknown]

NARRATIVE: CASE EVENT DATE: 201001
